FAERS Safety Report 15836989 (Version 1)
Quarter: 2018Q4

REPORT INFORMATION
  Report Type: Spontaneous
  Country: US (occurrence: US)
  Receive Date: 20181221
  Receipt Date: 20181221
  Transmission Date: 20190205
  Serious: Yes (Hospitalization)
  Sender: FDA-Public Use
  Company Number: None

PATIENT
  Age: 8 Month
  Sex: Female

DRUGS (6)
  1. VIGABATRIN 500 [Suspect]
     Active Substance: VIGABATRIN
     Indication: MUSCLE SPASMS
     Route: 048
     Dates: start: 20181016
  2. KETOCARE [Concomitant]
  3. ACTHAR [Suspect]
     Active Substance: CORTICOTROPIN
     Indication: MUSCLE SPASMS
     Dosage: 0.3/0.15/0.1/0.5 ML BID/QD/QOD, IM
     Route: 030
     Dates: start: 20181016, end: 20181026
  4. ACTHAR [Suspect]
     Active Substance: CORTICOTROPIN
     Indication: EPILEPSY
     Dosage: 0.3/0.15/0.1/0.5 ML BID/QD/QOD, IM
     Route: 030
     Dates: start: 20181016, end: 20181026
  5. MIRALAX [Concomitant]
     Active Substance: POLYETHYLENE GLYCOL 3350
  6. VIGABATRIN 500 [Suspect]
     Active Substance: VIGABATRIN
     Indication: EPILEPSY
     Route: 048
     Dates: start: 20181016

REACTIONS (1)
  - Hospitalisation [None]

NARRATIVE: CASE EVENT DATE: 201811
